FAERS Safety Report 9753514 (Version 4)
Quarter: 2014Q1

REPORT INFORMATION
  Report Type: Spontaneous
  Country: US (occurrence: US)
  Receive Date: 20131213
  Receipt Date: 20140115
  Transmission Date: 20141002
  Serious: No
  Sender: FDA-Public Use
  Company Number: US-009507513-1312USA002215

PATIENT
  Age: 29 Year
  Sex: Female
  Weight: 108.84 kg

DRUGS (2)
  1. IMPLANON [Suspect]
     Indication: CONTRACEPTION
     Dosage: 1 ROD, UNK
     Dates: start: 200803, end: 201102
  2. IMPLANON [Suspect]
     Dosage: 1 ROD, UNK
     Route: 030
     Dates: start: 20110203, end: 20131231

REACTIONS (9)
  - Tenderness [Unknown]
  - Medical device complication [Unknown]
  - Medical device complication [Unknown]
  - Drug hypersensitivity [Unknown]
  - Rash [Unknown]
  - Pain [Not Recovered/Not Resolved]
  - Local swelling [Unknown]
  - Incorrect route of drug administration [Unknown]
  - Complication of device removal [Unknown]
